FAERS Safety Report 4859860-2 (Version None)
Quarter: 2005Q4

REPORT INFORMATION
  Report Type: 
  Country: None (occurrence: None)
  Receive Date: 20051219
  Receipt Date: 20051209
  Transmission Date: 20060501
  Serious: Yes (Disabling)
  Sender: FDA-Public Use
  Company Number: JP-JNJFOC-20051202976

PATIENT
  Age: 4 Decade
  Sex: Female

DRUGS (5)
  1. CRAVIT [Suspect]
     Indication: ABDOMINAL DISCOMFORT
     Route: 048
     Dates: start: 20051208, end: 20051209
  2. GASMOTIN [Suspect]
     Indication: DRUG USE FOR UNKNOWN INDICATION
     Route: 048
  3. LOXONIN [Suspect]
     Indication: DRUG USE FOR UNKNOWN INDICATION
     Route: 048
  4. BIOFERMIN R [Concomitant]
     Route: 048
  5. APLACE [Concomitant]
     Route: 048

REACTIONS (1)
  - RADIAL NERVE PALSY [None]
